FAERS Safety Report 21104304 (Version 1)
Quarter: 2022Q3

REPORT INFORMATION
  Report Type: Spontaneous
  Country: US (occurrence: None)
  Receive Date: 20220719
  Receipt Date: 20220719
  Transmission Date: 20221027
  Serious: Yes (unspecified)
  Sender: FDA-Public Use
  Company Number: None

PATIENT
  Age: 57 Year
  Sex: Male
  Weight: 92.99 kg

DRUGS (5)
  1. MAGNESIUM CITRATE LEMON [Suspect]
     Active Substance: MAGNESIUM CITRATE
     Indication: Bowel preparation
     Dosage: OTHER STRENGTH : 280MG/OZ-10OZ;?FREQUENCY : AS NEEDED;?
     Route: 048
     Dates: start: 20220628, end: 20220629
  2. HYDROCHLOROTHIAZIDE [Concomitant]
     Active Substance: HYDROCHLOROTHIAZIDE
  3. ATORVASTATIN [Concomitant]
     Active Substance: ATORVASTATIN
  4. CULTURELLE PRE/PROBIOTIC [Concomitant]
  5. MULTIVITAMIN [Concomitant]

REACTIONS (10)
  - Diarrhoea haemorrhagic [None]
  - Abdominal pain [None]
  - Tremor [None]
  - Chills [None]
  - Pyrexia [None]
  - Burning sensation [None]
  - Rash [None]
  - Viral infection [None]
  - Recalled product administered [None]
  - Product contamination microbial [None]

NARRATIVE: CASE EVENT DATE: 20220707
